FAERS Safety Report 4787574-6 (Version None)
Quarter: 2005Q4

REPORT INFORMATION
  Report Type: 
  Country: None (occurrence: None)
  Receive Date: 20051003
  Receipt Date: 20050919
  Transmission Date: 20060501
  Serious: Yes (Other)
  Sender: FDA-Public Use
  Company Number: 2005133989

PATIENT
  Age: 44 Year
  Sex: Female

DRUGS (2)
  1. DEPO-PROVERA [Suspect]
     Indication: CONTRACEPTION
     Dosage: 150 MG (150 MG, EVERY 3 MONTHS, 1ST INJ); 150 MG (150 MG, LAST INJ.)
     Dates: start: 20010801, end: 20010801
  2. DEPO-PROVERA [Suspect]
     Indication: CONTRACEPTION
     Dosage: 150 MG (150 MG, EVERY 3 MONTHS, 1ST INJ); 150 MG (150 MG, LAST INJ.)
     Dates: start: 20050401, end: 20050401

REACTIONS (2)
  - HYPERTENSION [None]
  - OSTEOPOROSIS [None]
